FAERS Safety Report 8431434-6 (Version None)
Quarter: 2012Q2

REPORT INFORMATION
  Report Type: 
  Country: None (occurrence: None)
  Receive Date: 20120607
  Receipt Date: 20120607
  Transmission Date: 20120825
  Serious: Yes (Hospitalization, Other)
  Sender: FDA-Public Use
  Company Number: None

PATIENT
  Sex: Male
  Weight: 73.4827 kg

DRUGS (1)
  1. PRADAXA [Suspect]
     Indication: ANTICOAGULANT THERAPY
     Dosage: 150 MG 1 CAPSULE TWICE DAY
     Dates: start: 20120314, end: 20120423

REACTIONS (2)
  - HAEMATOCHEZIA [None]
  - INTESTINAL HAEMORRHAGE [None]
